FAERS Safety Report 14290994 (Version 9)
Quarter: 2018Q3

REPORT INFORMATION
  Report Type: Report from Study
  Country: FR (occurrence: FR)
  Receive Date: 20171215
  Receipt Date: 20180925
  Transmission Date: 20181010
  Serious: Yes (Hospitalization, Other)
  Sender: FDA-Public Use
  Company Number: FR-PFIZER INC-2017527703

PATIENT
  Age: 69 Year
  Sex: Female

DRUGS (10)
  1. CALCIUM FOLINATE [Suspect]
     Active Substance: LEUCOVORIN CALCIUM
     Dosage: 1 DF, CYCLIC (REGIMEN 2)
     Route: 042
  2. FLUOROURACIL. [Suspect]
     Active Substance: FLUOROURACIL
     Indication: COLORECTAL CANCER METASTATIC
     Dosage: 1 DF, CYCLIC (REGIMEN 1)
     Route: 042
  3. CALCIUM FOLINATE [Suspect]
     Active Substance: LEUCOVORIN CALCIUM
     Indication: COLORECTAL CANCER METASTATIC
     Dosage: 1 DF, CYCLIC (REGIMEN 1)
     Route: 042
     Dates: start: 20170703, end: 20170703
  4. AFLIBERCEPT [Suspect]
     Active Substance: AFLIBERCEPT
     Indication: COLORECTAL CANCER METASTATIC
     Dosage: 1 DF, CYCLIC (REGIMEN 1)
     Route: 042
     Dates: start: 20170703, end: 20170703
  5. AFLIBERCEPT [Suspect]
     Active Substance: AFLIBERCEPT
     Dosage: 1 DF, CYCLIC (REGIMEN 2)
     Route: 042
     Dates: start: 20170915, end: 20170915
  6. FLUOROURACIL. [Suspect]
     Active Substance: FLUOROURACIL
     Dosage: 1 DF, CYCLIC (REGIMEN 2)
     Route: 042
     Dates: start: 20170703, end: 20170703
  7. CALCIUM FOLINATE [Suspect]
     Active Substance: LEUCOVORIN CALCIUM
     Dosage: 1 DF, CYCLIC (REGIMEN 3)
     Route: 042
  8. IRINOTECAN [Suspect]
     Active Substance: IRINOTECAN
     Indication: COLORECTAL CANCER METASTATIC
     Dosage: 1 DF, CYCLIC (REGIMEN 1)
     Route: 042
  9. IRINOTECAN [Suspect]
     Active Substance: IRINOTECAN
     Dosage: 1 DF, CYCLIC (REGIMEN 2)
     Route: 042
     Dates: start: 20170703, end: 20170703
  10. INNOHEP [Concomitant]
     Active Substance: TINZAPARIN SODIUM

REACTIONS (1)
  - Vena cava thrombosis [Recovered/Resolved]

NARRATIVE: CASE EVENT DATE: 20170915
